FAERS Safety Report 11125554 (Version 1)
Quarter: 2015Q2

REPORT INFORMATION
  Report Type: Spontaneous
  Country: US (occurrence: US)
  Receive Date: 20150520
  Receipt Date: 20150520
  Transmission Date: 20150821
  Serious: No
  Sender: FDA-Public Use
  Company Number: US-PFIZER INC-2015168569

PATIENT
  Age: 40 Year
  Sex: Female
  Weight: 77.98 kg

DRUGS (3)
  1. ADVIL [Suspect]
     Active Substance: IBUPROFEN
     Indication: MIGRAINE
     Dosage: 200 MG, UNK
     Dates: start: 201504
  2. ADVIL [Suspect]
     Active Substance: IBUPROFEN
     Indication: MUSCLE DISORDER
     Dosage: 3 DF, UNK
     Dates: start: 20150513, end: 20150514
  3. ADVIL [Suspect]
     Active Substance: IBUPROFEN
     Indication: PAIN
     Dosage: 2 DF, 1X/DAY

REACTIONS (12)
  - Dizziness [Recovered/Resolved]
  - Tinnitus [Recovered/Resolved]
  - Skin disorder [Recovered/Resolved]
  - Burning sensation [Recovering/Resolving]
  - Intentional product use issue [Recovered/Resolved]
  - Drug ineffective [Recovered/Resolved]
  - Presyncope [Recovered/Resolved]
  - Blood bilirubin increased [Recovered/Resolved]
  - Pruritus [Recovering/Resolving]
  - Dyspnoea [Recovered/Resolved]
  - Drug hypersensitivity [Recovering/Resolving]
  - Urticaria [Recovered/Resolved]

NARRATIVE: CASE EVENT DATE: 201504
